FAERS Safety Report 4665496-9 (Version None)
Quarter: 2005Q2

REPORT INFORMATION
  Report Type: 
  Country: None (occurrence: None)
  Receive Date: 20050519
  Receipt Date: 20050118
  Transmission Date: 20051028
  Serious: Yes (Hospitalization, Other)
  Sender: FDA-Public Use
  Company Number: US-BRISTOL-MYERS SQUIBB COMPANY-12827929

PATIENT
  Age: 17 Year
  Sex: Male

DRUGS (7)
  1. CYTOXAN [Suspect]
     Indication: SARCOMA
     Dates: start: 20040816
  2. ETOPOSIDE [Suspect]
     Indication: SARCOMA
     Dates: start: 20040816
  3. CISPLATIN [Suspect]
     Indication: SARCOMA
     Dates: start: 20040816
  4. IFOSFAMIDE [Suspect]
     Indication: SARCOMA
  5. ADRIAMYCIN PFS [Suspect]
     Indication: SARCOMA
     Dates: start: 20040816
  6. VINCRISTINE [Suspect]
     Indication: SARCOMA
     Dates: start: 20040816
  7. CLOZAPINE [Suspect]
     Indication: SCHIZOPHRENIA
     Dosage: DOSE RANGE FROM 300-75 MG
     Route: 048
     Dates: start: 20040601

REACTIONS (4)
  - AGRANULOCYTOSIS [None]
  - ANAEMIA [None]
  - EWING'S SARCOMA METASTATIC [None]
  - THROMBOCYTOPENIA [None]
